FAERS Safety Report 10022956 (Version 1)
Quarter: 2014Q1

REPORT INFORMATION
  Report Type: Spontaneous
  Country: US (occurrence: US)
  Receive Date: 20140319
  Receipt Date: 20140319
  Transmission Date: 20141002
  Serious: No
  Sender: FDA-Public Use
  Company Number: US-SA-2014SA020797

PATIENT
  Sex: Male

DRUGS (2)
  1. NASACORT ALLERGY [Suspect]
     Indication: NASOPHARYNGITIS
     Route: 065
  2. ROBITUSSIN CF [Concomitant]

REACTIONS (1)
  - Therapeutic response decreased [Unknown]
